FAERS Safety Report 6167638-5 (Version None)
Quarter: 2009Q2

REPORT INFORMATION
  Report Type: 
  Country: None (occurrence: None)
  Receive Date: 20090424
  Receipt Date: 20090108
  Transmission Date: 20091009
  Serious: Yes (Other)
  Sender: FDA-Public Use
  Company Number: PHHY2009SE00776

PATIENT
  Sex: Male

DRUGS (4)
  1. TEGRETOL [Suspect]
     Indication: EPILEPSY
     Dosage: 200MGX2
     Dates: start: 20070101
  2. TEGRETOL [Suspect]
     Dosage: 600MG/DAY
  3. MIDAZOLAM HCL [Suspect]
  4. IQ [Concomitant]

REACTIONS (1)
  - AGGRESSION [None]
